FAERS Safety Report 24622301 (Version 1)
Quarter: 2024Q4

REPORT INFORMATION
  Report Type: Report from Study
  Country: AU (occurrence: AU)
  Receive Date: 20241114
  Receipt Date: 20241114
  Transmission Date: 20250114
  Serious: Yes (Other)
  Sender: ABBVIE
  Company Number: AU-ABBVIE-5965716

PATIENT
  Age: 54 Year
  Sex: Male

DRUGS (2)
  1. RINVOQ [Suspect]
     Active Substance: UPADACITINIB
     Indication: Dermatitis atopic
     Dosage: LAST ADMIN DATE 2024
     Route: 048
     Dates: start: 20240808
  2. RINVOQ [Suspect]
     Active Substance: UPADACITINIB
     Indication: Dermatitis atopic
     Dosage: DOSE DECREASED
     Route: 048
     Dates: start: 2024

REACTIONS (4)
  - Open globe injury [Recovering/Resolving]
  - Mental disorder [Recovering/Resolving]
  - Herpes simplex reactivation [Recovering/Resolving]
  - Cough [Recovering/Resolving]

NARRATIVE: CASE EVENT DATE: 20240101
